FAERS Safety Report 6930313-0 (Version None)
Quarter: 2010Q3

REPORT INFORMATION
  Report Type: 
  Country: None (occurrence: None)
  Receive Date: 20100813
  Receipt Date: 20100730
  Transmission Date: 20110219
  Serious: Yes (Hospitalization)
  Sender: FDA-Public Use
  Company Number: 2010EU003783

PATIENT
  Age: 58 Year
  Sex: Female

DRUGS (5)
  1. PROGRAF [Suspect]
     Indication: PROPHYLAXIS AGAINST TRANSPLANT REJECTION
     Dosage: 4 MG, BID, ORAL; 4 MG, ORAL
     Route: 048
     Dates: start: 20100130, end: 20100619
  2. CELLCEPT [Concomitant]
  3. PREDNISONE [Concomitant]
  4. KARDEGIC (ACETYLSALICYLATE LYSINE) [Concomitant]
  5. FUROSEMIDE [Concomitant]

REACTIONS (6)
  - ACINETOBACTER BACTERAEMIA [None]
  - BLOOD LACTATE DEHYDROGENASE INCREASED [None]
  - RENAL ARTERY STENOSIS [None]
  - STENOTROPHOMONAS INFECTION [None]
  - TACHYCARDIA [None]
  - THROMBOTIC MICROANGIOPATHY [None]
